FAERS Safety Report 25007395 (Version 1)
Quarter: 2025Q1

REPORT INFORMATION
  Report Type: Report from Study
  Country: US (occurrence: US)
  Receive Date: 20250225
  Receipt Date: 20250225
  Transmission Date: 20250409
  Serious: Yes (Other)
  Sender: ALEXION PHARMACEUTICALS
  Company Number: US-AstraZeneca-CH-00810857A

PATIENT

DRUGS (1)
  1. EPLONTERSEN SODIUM [Suspect]
     Active Substance: EPLONTERSEN SODIUM
     Indication: Product used for unknown indication
     Dosage: 45 MILLIGRAM, Q4W
     Route: 065

REACTIONS (6)
  - Optic nerve injury [Unknown]
  - Diplopia [Unknown]
  - Diplopia [Unknown]
  - Headache [Unknown]
  - Burning feet syndrome [Unknown]
  - Gait disturbance [Unknown]
